FAERS Safety Report 7041301-0 (Version None)
Quarter: 2010Q4

REPORT INFORMATION
  Report Type: 
  Country: None (occurrence: None)
  Receive Date: 20101013
  Receipt Date: 20101006
  Transmission Date: 20110411
  Serious: Yes (Life-Threatening)
  Sender: FDA-Public Use
  Company Number: DE-SANOFI-AVENTIS-2010SA044771

PATIENT
  Age: 69 Year
  Sex: Female
  Weight: 45 kg

DRUGS (15)
  1. FUROSEMID [Suspect]
     Route: 048
     Dates: start: 20100701, end: 20100709
  2. AMPHOTERICIN B [Concomitant]
  3. ALFACALCIDOL [Concomitant]
  4. PANKREATIN [Concomitant]
  5. COLECALCIFEROL [Concomitant]
  6. LEVOTHYROXINE SODIUM [Concomitant]
  7. ESCITALOPRAM [Concomitant]
  8. MIRTAZAPINE [Concomitant]
  9. NOVAMINSULFON [Concomitant]
  10. AMLODIPINE [Concomitant]
  11. PANTOPRAZOLE [Concomitant]
  12. OXAZEPAM [Concomitant]
  13. CLINDAMYCIN [Concomitant]
  14. SACCHAROMYCES BOULARDII [Concomitant]
  15. HEPARIN SODIUM [Concomitant]

REACTIONS (3)
  - COMA [None]
  - DEHYDRATION [None]
  - EPILEPSY [None]
